FAERS Safety Report 5723193-2 (Version None)
Quarter: 2008Q2

REPORT INFORMATION
  Report Type: 
  Country: None (occurrence: None)
  Receive Date: 20080425
  Receipt Date: 20080421
  Transmission Date: 20081010
  Serious: Yes (Hospitalization)
  Sender: FDA-Public Use
  Company Number: 2008SP007060

PATIENT
  Age: 10 Year
  Sex: Male

DRUGS (3)
  1. NOXAFIL [Suspect]
     Indication: LUNG INFECTION
     Dosage: 400 MG; QD;
     Dates: start: 20080220, end: 20080320
  2. TRIMETPRIM/SULFAMETOSSAZOLO [Concomitant]
  3. VORICONAZOLE [Concomitant]

REACTIONS (1)
  - PANCREATITIS [None]
